FAERS Safety Report 4913816-X (Version None)
Quarter: 2006Q1

REPORT INFORMATION
  Report Type: 
  Country: None (occurrence: None)
  Receive Date: 20060216
  Receipt Date: 20060207
  Transmission Date: 20060701
  Serious: Yes (Hospitalization)
  Sender: FDA-Public Use
  Company Number: US-GILEAD-2006-0009198

PATIENT
  Sex: Male

DRUGS (21)
  1. TRUVADA [Suspect]
     Indication: HIV INFECTION
     Route: 048
     Dates: start: 20050701, end: 20060125
  2. BLINDED UK-427,857 [Suspect]
     Indication: HIV INFECTION
     Route: 048
     Dates: start: 20060123, end: 20060125
  3. VIRAMUNE [Suspect]
     Indication: HIV INFECTION
     Route: 048
     Dates: start: 20060123, end: 20060125
  4. FUZEON [Suspect]
     Indication: HIV INFECTION
     Route: 058
     Dates: start: 20060123, end: 20060125
  5. KALETRA [Suspect]
     Indication: HIV INFECTION
     Route: 048
     Dates: start: 20060123, end: 20060125
  6. REYATAZ [Concomitant]
     Route: 048
     Dates: start: 20050701, end: 20060122
  7. NORVIR [Concomitant]
     Route: 048
     Dates: start: 20050701, end: 20060122
  8. AZT [Concomitant]
     Route: 048
     Dates: start: 20050701, end: 20060122
  9. ACYCLOVIR SODIUM [Concomitant]
     Route: 048
     Dates: start: 20020913
  10. AVODART [Concomitant]
     Route: 048
     Dates: start: 20050601
  11. TAMSULOSIN HCL [Concomitant]
     Route: 048
     Dates: start: 20050201
  12. PROMETHAZINE [Concomitant]
     Route: 048
     Dates: start: 20050516
  13. FAMOTIDINE [Concomitant]
     Route: 048
     Dates: start: 20031107
  14. SYNTHROID [Concomitant]
     Route: 048
     Dates: start: 20000830
  15. OXYCODONE [Concomitant]
     Route: 048
     Dates: start: 20041029
  16. DOCUSATE [Concomitant]
     Route: 048
     Dates: start: 20041101
  17. DAPSONE [Concomitant]
     Route: 048
     Dates: start: 20050318
  18. ENSURE PLUS [Concomitant]
     Route: 048
     Dates: start: 20050513
  19. DIAZEPAM [Concomitant]
     Route: 048
     Dates: start: 20010101
  20. FENTANYL [Concomitant]
     Route: 062
     Dates: start: 20051222
  21. KEFLEX [Concomitant]
     Route: 048
     Dates: start: 20060106, end: 20060114

REACTIONS (1)
  - STEVENS-JOHNSON SYNDROME [None]
